FAERS Safety Report 22526835 (Version 2)
Quarter: 2023Q2

REPORT INFORMATION
  Report Type: Spontaneous
  Country: US (occurrence: None)
  Receive Date: 20230606
  Receipt Date: 20230608
  Transmission Date: 20230721
  Serious: Yes (Other)
  Sender: FDA-Public Use
  Company Number: US-ROCHE-3362299

PATIENT
  Sex: Female

DRUGS (1)
  1. OCREVUS [Suspect]
     Active Substance: OCRELIZUMAB
     Indication: Multiple sclerosis
     Dosage: ONGOING: UNKNOWN
     Route: 065

REACTIONS (3)
  - Colitis microscopic [Not Recovered/Not Resolved]
  - Cognitive disorder [Unknown]
  - Diarrhoea [Not Recovered/Not Resolved]
